FAERS Safety Report 4909828-2 (Version None)
Quarter: 2006Q1

REPORT INFORMATION
  Report Type: 
  Country: None (occurrence: None)
  Receive Date: 20060213
  Receipt Date: 20060208
  Transmission Date: 20060701
  Serious: Yes (Death)
  Sender: FDA-Public Use
  Company Number: PHHO2006JP02460

PATIENT
  Age: 56 Year
  Sex: Male

DRUGS (4)
  1. ATELEC [Concomitant]
     Indication: HYPERTENSION
     Dosage: 5 MG, UNK
     Route: 048
     Dates: start: 20000406
  2. SELECTOL [Concomitant]
     Indication: HYPERTENSION
     Dosage: 100 MG, UNK
     Route: 048
     Dates: start: 20000406
  3. ALDOMET [Concomitant]
     Indication: HYPERTENSION
     Dosage: 750 MG, UNK
     Route: 048
     Dates: start: 20030501
  4. DIOVAN [Suspect]
     Indication: HYPERTENSION
     Dosage: 40 MG, QD
     Route: 048
     Dates: start: 20030501

REACTIONS (1)
  - SUDDEN DEATH [None]
